FAERS Safety Report 10407806 (Version 6)
Quarter: 2015Q1

REPORT INFORMATION
  Report Type: Report from Study
  Country: DE (occurrence: DE)
  Receive Date: 20140825
  Receipt Date: 20150316
  Transmission Date: 20150720
  Serious: Yes (Hospitalization, Other)
  Sender: FDA-Public Use
  Company Number: DE-TEVA-504494USA

PATIENT
  Sex: Male
  Weight: 112 kg

DRUGS (3)
  1. BENDAMUSTINE HYDROCHLORIDE [Suspect]
     Active Substance: BENDAMUSTINE HYDROCHLORIDE
     Indication: PLASMA CELL MYELOMA
     Dosage: 150 MG, ONCE DAILY (DAY 1 + 2)
     Route: 042
     Dates: start: 20140625
  2. LENALIDOMIDE [Suspect]
     Active Substance: LENALIDOMIDE
     Indication: PLASMA CELL MYELOMA
     Dosage: 25 MG, ONCE DAILY (DAY 1-21)
     Route: 048
     Dates: start: 20140625
  3. DEXAMETHASONE. [Suspect]
     Active Substance: DEXAMETHASONE
     Indication: PLASMA CELL MYELOMA
     Dosage: 40 MG, ONCE DAILY (DAY 1,8,15,22)
     Route: 048
     Dates: start: 20140625

REACTIONS (4)
  - Pain [Recovered/Resolved]
  - Femur fracture [Recovered/Resolved with Sequelae]
  - Rib fracture [Not Recovered/Not Resolved]
  - Femur fracture [Recovered/Resolved]

NARRATIVE: CASE EVENT DATE: 20140814
